FAERS Safety Report 5405051-6 (Version None)
Quarter: 2007Q3

REPORT INFORMATION
  Report Type: 
  Country: None (occurrence: None)
  Receive Date: 20070803
  Receipt Date: 20070726
  Transmission Date: 20080115
  Serious: Yes (Hospitalization)
  Sender: FDA-Public Use
  Company Number: AT-AMGEN-UK236250

PATIENT
  Sex: Male

DRUGS (10)
  1. ARANESP [Suspect]
     Indication: RENAL FAILURE CHRONIC
     Route: 042
     Dates: start: 20030501, end: 20070724
  2. CANDESARTAN CILEXETIL [Concomitant]
     Route: 065
  3. FUROSEMIDE [Concomitant]
     Route: 065
  4. NIFEDIPINE [Concomitant]
     Route: 065
  5. METOPROLOL SUCCINATE [Concomitant]
  6. DREISAVIT [Concomitant]
     Route: 065
  7. CALCITRIOL [Concomitant]
     Route: 065
  8. CALCIUM CARBONATE [Concomitant]
     Route: 065
  9. ALLOPURINOL [Concomitant]
     Route: 065
  10. FERROUS SULFATE [Concomitant]
     Route: 065

REACTIONS (6)
  - CHILLS [None]
  - CONVULSION [None]
  - HAEMOGLOBIN DECREASED [None]
  - HYPERTENSION [None]
  - MUSCLE SPASMS [None]
  - PYREXIA [None]
